FAERS Safety Report 7549290-7 (Version None)
Quarter: 2011Q2

REPORT INFORMATION
  Report Type: 
  Country: None (occurrence: None)
  Receive Date: 20110615
  Receipt Date: 20021216
  Transmission Date: 20111010
  Serious: Yes (Hospitalization)
  Sender: FDA-Public Use
  Company Number: PHEH2002US10539

PATIENT
  Sex: Female

DRUGS (4)
  1. ACEBUTOLOL [Concomitant]
  2. ASPIRIN [Concomitant]
  3. PAXIL [Concomitant]
  4. EXELON [Suspect]
     Indication: DEMENTIA ALZHEIMER'S TYPE
     Dosage: 3 MG, BID
     Route: 048
     Dates: start: 20011101

REACTIONS (2)
  - CHEST PAIN [None]
  - SYNCOPE [None]
